FAERS Safety Report 13785141 (Version 1)
Quarter: 2017Q3

REPORT INFORMATION
  Report Type: Spontaneous
  Country: US (occurrence: US)
  Receive Date: 20170724
  Receipt Date: 20170724
  Transmission Date: 20171127
  Serious: No
  Sender: FDA-Public Use
  Company Number: None

PATIENT
  Age: 88 Year
  Sex: Female

DRUGS (1)
  1. TRESIBA [Suspect]
     Active Substance: INSULIN DEGLUDEC

REACTIONS (5)
  - Overdose [None]
  - Hypoglycaemia [None]
  - Loss of consciousness [None]
  - Macular degeneration [None]
  - Visual impairment [None]
